FAERS Safety Report 6081525-2 (Version None)
Quarter: 2009Q1

REPORT INFORMATION
  Report Type: 
  Country: None (occurrence: None)
  Receive Date: 20090218
  Receipt Date: 20090204
  Transmission Date: 20090719
  Serious: Yes (Hospitalization)
  Sender: FDA-Public Use
  Company Number: JP-PFIZER INC-2008152850

PATIENT

DRUGS (2)
  1. HALCION [Suspect]
     Dosage: 0.25 MG, UNK
     Dates: start: 20081122, end: 20080101
  2. TERNELIN [Suspect]
     Dosage: 1 MG, 3X/DAY
     Route: 048
     Dates: start: 20080328

REACTIONS (1)
  - CONVULSION [None]
